FAERS Safety Report 4806000-1 (Version None)
Quarter: 2005Q4

REPORT INFORMATION
  Report Type: 
  Country: None (occurrence: None)
  Receive Date: 20051021
  Receipt Date: 20051018
  Transmission Date: 20060501
  Serious: Yes (Hospitalization, Other)
  Sender: FDA-Public Use
  Company Number: US-GLAXOSMITHKLINE-A0578876A

PATIENT
  Age: 51 Year
  Sex: Female

DRUGS (10)
  1. PAXIL [Suspect]
     Indication: DEPRESSION
     Dosage: 30MG PER DAY
     Route: 048
     Dates: start: 20030101
  2. PAROXETINE HCL [Suspect]
     Indication: DEPRESSION
     Dosage: 30MG PER DAY
     Route: 048
  3. WELLBUTRIN XL [Concomitant]
     Route: 048
  4. ADVAIR DISKUS 100/50 [Concomitant]
     Route: 055
  5. HUMALOG [Concomitant]
     Route: 065
  6. ZYRTEC [Concomitant]
     Route: 065
  7. ECOTRIN [Concomitant]
     Route: 065
  8. ZOCOR [Concomitant]
     Route: 065
  9. SINGULAIR [Concomitant]
     Route: 065
  10. METAMUCIL [Concomitant]
     Route: 065

REACTIONS (6)
  - DEPRESSION [None]
  - DRUG INEFFECTIVE [None]
  - DRUG WITHDRAWAL SYNDROME [None]
  - HEADACHE [None]
  - NAUSEA [None]
  - SUICIDAL IDEATION [None]
